FAERS Safety Report 5136542-3 (Version None)
Quarter: 2006Q4

REPORT INFORMATION
  Report Type: 
  Country: None (occurrence: None)
  Receive Date: 20061027
  Receipt Date: 20060825
  Transmission Date: 20070319
  Serious: Yes (Disabling)
  Sender: FDA-Public Use
  Company Number: BE-BOEHRINGER INGELHEIM PHARMACEUTICALS, INC.-2006-DE-04551BY

PATIENT
  Age: 51 Year
  Sex: Male

DRUGS (1)
  1. KINZALKOMB [Suspect]
     Indication: HYPERTENSION
     Route: 065
     Dates: end: 20060914

REACTIONS (2)
  - PAIN [None]
  - TENDONITIS [None]
